FAERS Safety Report 6240518-2 (Version None)
Quarter: 2009Q2

REPORT INFORMATION
  Report Type: 
  Country: None (occurrence: None)
  Receive Date: 20090623
  Receipt Date: 20090410
  Transmission Date: 20091009
  Serious: No
  Sender: FDA-Public Use
  Company Number: US-ASTRAZENECA-2009UW09091

PATIENT
  Sex: Male
  Weight: 76.2 kg

DRUGS (2)
  1. PULMICORT FLEXHALER [Suspect]
     Indication: ASTHMA
     Dosage: 120 MCG DAILY
     Route: 055
     Dates: start: 20081111
  2. ALBUTEROL [Concomitant]

REACTIONS (2)
  - ASTHMA [None]
  - DRUG INEFFECTIVE [None]
